FAERS Safety Report 20684217 (Version 1)
Quarter: 2022Q2

REPORT INFORMATION
  Report Type: Spontaneous
  Country: US (occurrence: None)
  Receive Date: 20220405
  Receipt Date: 20220405
  Transmission Date: 20220720
  Serious: Yes (Death)
  Sender: FDA-Public Use
  Company Number: None

PATIENT
  Age: 71 Year
  Sex: Female

DRUGS (1)
  1. ENOXAPARIN [Suspect]
     Active Substance: ENOXAPARIN
     Dosage: OTHER QUANTITY : 1 INJECTION;?OTHER FREQUENCY : OTHER;?
     Route: 058
     Dates: start: 20220405

REACTIONS (1)
  - Death [None]

NARRATIVE: CASE EVENT DATE: 20220325
